FAERS Safety Report 12164835 (Version 2)
Quarter: 2016Q1

REPORT INFORMATION
  Report Type: Spontaneous
  Country: US (occurrence: US)
  Receive Date: 20160309
  Receipt Date: 20160323
  Transmission Date: 20160526
  Serious: Yes (Other)
  Sender: FDA-Public Use
  Company Number: US-ABBVIE-15P-163-1450363-00

PATIENT
  Sex: Female
  Weight: 70.37 kg

DRUGS (7)
  1. LUPRON DEPOT [Suspect]
     Active Substance: LEUPROLIDE ACETATE
     Indication: ENDOMETRIOSIS
     Route: 030
     Dates: start: 1999, end: 1999
  2. LUPANETA PACK [Suspect]
     Active Substance: ISOPROPYL ALCOHOL\LEUPROLIDE ACETATE\NORETHINDRONE ACETATE
     Indication: ENDOMETRIOSIS
     Route: 030
     Dates: start: 20150709
  3. ZOLOFT [Concomitant]
     Active Substance: SERTRALINE HYDROCHLORIDE
     Indication: ANXIETY
  4. ZOLOFT [Concomitant]
     Active Substance: SERTRALINE HYDROCHLORIDE
     Indication: DEPRESSION
     Route: 065
     Dates: start: 201509
  5. LUPANETA PACK [Suspect]
     Active Substance: ISOPROPYL ALCOHOL\LEUPROLIDE ACETATE\NORETHINDRONE ACETATE
     Indication: ENDOMETRIOSIS
     Route: 048
     Dates: start: 20150709
  6. PROPRANOLOL [Concomitant]
     Active Substance: PROPRANOLOL\PROPRANOLOL HYDROCHLORIDE
     Indication: MIGRAINE
  7. XANAX [Concomitant]
     Active Substance: ALPRAZOLAM
     Indication: PANIC ATTACK

REACTIONS (23)
  - Hypoaesthesia [Not Recovered/Not Resolved]
  - Memory impairment [Recovering/Resolving]
  - Depression [Recovered/Resolved]
  - Migraine [Recovered/Resolved]
  - Mood altered [Recovered/Resolved]
  - Mood swings [Recovered/Resolved]
  - Night sweats [Recovered/Resolved]
  - Hot flush [Not Recovered/Not Resolved]
  - Pelvic pain [Not Recovered/Not Resolved]
  - Suicidal ideation [Recovered/Resolved]
  - Panic attack [Recovered/Resolved]
  - Bronchitis [Recovered/Resolved]
  - Endometriosis [Not Recovered/Not Resolved]
  - Loss of libido [Recovered/Resolved]
  - Hot flush [Recovered/Resolved]
  - Fungal infection [Recovered/Resolved]
  - Weight increased [Not Recovered/Not Resolved]
  - Candida infection [Recovering/Resolving]
  - Libido decreased [Not Recovered/Not Resolved]
  - Depression [Recovered/Resolved]
  - Night sweats [Recovered/Resolved]
  - Respiratory tract infection [Recovered/Resolved]
  - Herpes zoster [Recovering/Resolving]

NARRATIVE: CASE EVENT DATE: 1999
